FAERS Safety Report 6700777-6 (Version None)
Quarter: 2010Q2

REPORT INFORMATION
  Report Type: 
  Country: None (occurrence: None)
  Receive Date: 20100428
  Receipt Date: 20100422
  Transmission Date: 20101027
  Serious: Yes (Hospitalization)
  Sender: FDA-Public Use
  Company Number: FR-WYE-G06005010

PATIENT
  Sex: Female

DRUGS (12)
  1. EFFEXOR XR [Suspect]
     Dosage: UNKNOWN
     Route: 048
     Dates: start: 20100210, end: 20100223
  2. GLUCOPHAGE [Suspect]
     Dosage: UNKNOWN
     Route: 048
     Dates: start: 20100204, end: 20100223
  3. ROCEPHIN [Suspect]
     Dosage: 2 G TOTAL DAILY
     Route: 030
     Dates: start: 20100119, end: 20100222
  4. COZAAR [Concomitant]
     Dosage: UNKNOWN
  5. HEPARIN [Concomitant]
     Dosage: UNKNOWN
  6. LOXEN [Concomitant]
     Dosage: UNKNOWN
  7. NEXIUM [Concomitant]
     Dosage: UNKNOWN
  8. FUROSEMIDE [Concomitant]
     Dosage: UNKNOWN
  9. SYMBICORT [Concomitant]
     Dosage: UNKNOWN
  10. BRICANYL [Concomitant]
     Dosage: UNKNOWN
  11. SINTROM [Suspect]
     Dosage: UNKNOWN
     Route: 048
     Dates: start: 20100204, end: 20100223
  12. DIGOXIN [Concomitant]
     Dosage: UNKNOWN

REACTIONS (13)
  - ALANINE AMINOTRANSFERASE INCREASED [None]
  - ASPARTATE AMINOTRANSFERASE INCREASED [None]
  - BLOOD CREATINE INCREASED [None]
  - BLOOD LACTATE DEHYDROGENASE INCREASED [None]
  - DRUG RASH WITH EOSINOPHILIA AND SYSTEMIC SYMPTOMS [None]
  - HAEMOGLOBIN DECREASED [None]
  - HUMAN HERPESVIRUS 6 INFECTION [None]
  - LIVER DISORDER [None]
  - LYMPHOCYTE MORPHOLOGY ABNORMAL [None]
  - PLATELET COUNT DECREASED [None]
  - RENAL DISORDER [None]
  - SEPTIC SHOCK [None]
  - WHITE BLOOD CELL COUNT INCREASED [None]
